FAERS Safety Report 16481424 (Version 1)
Quarter: 2019Q2

REPORT INFORMATION
  Report Type: Spontaneous
  Country: US (occurrence: US)
  Receive Date: 20190627
  Receipt Date: 20190627
  Transmission Date: 20190711
  Serious: No
  Sender: FDA-Public Use
  Company Number: US-GLAXOSMITHKLINE-US2019114676

PATIENT
  Age: 31 Year
  Sex: Male

DRUGS (2)
  1. NICODERM CQ [Suspect]
     Active Substance: NICOTINE
     Indication: SMOKING CESSATION THERAPY
     Dosage: 7 MG, QD
     Route: 062
  2. NICODERM CQ [Suspect]
     Active Substance: NICOTINE
     Dosage: 7 MG, QD
     Route: 062

REACTIONS (6)
  - Somnolence [Unknown]
  - Product complaint [Unknown]
  - Depression [Unknown]
  - Ill-defined disorder [Unknown]
  - Wrong technique in product usage process [Unknown]
  - Incorrect dose administered [Unknown]
